FAERS Safety Report 7139482-3 (Version None)
Quarter: 2010Q4

REPORT INFORMATION
  Report Type: 
  Country: None (occurrence: None)
  Receive Date: 20101206
  Receipt Date: 20101122
  Transmission Date: 20110411
  Serious: Yes (Hospitalization, Other)
  Sender: FDA-Public Use
  Company Number: US-PFIZER INC-US-WYE-H18436610

PATIENT
  Sex: Female
  Weight: 68.027 kg

DRUGS (18)
  1. PRISTIQ [Suspect]
     Indication: DEPRESSION
     Dosage: 50 MG, 1X/DAY
     Dates: start: 20100801, end: 20100901
  2. PRISTIQ [Suspect]
     Dosage: 100 MG, 1X/DAY
     Dates: start: 20100901, end: 20101005
  3. XANAX [Suspect]
     Indication: ANXIETY
     Dosage: .25 MG, 3X/DAY
     Route: 048
     Dates: start: 20100927, end: 20101006
  4. LORTAB [Suspect]
     Dosage: UNK
  5. ASPIRIN [Concomitant]
     Indication: MYOCARDIAL INFARCTION
     Dosage: 81 MG, 1X/DAY
     Dates: start: 20100910
  6. CRESTOR [Concomitant]
     Indication: BLOOD CHOLESTEROL INCREASED
     Dosage: 20 MG, 1X/DAY
  7. SYMBICORT [Concomitant]
     Dosage: 2 PUFF 2X/DAY
     Route: 055
  8. SYNTHROID [Concomitant]
     Indication: BLOOD IRON DECREASED
     Dosage: .075 MG, 1X/DAY
  9. CALCIUM [Concomitant]
     Indication: BLOOD CALCIUM DECREASED
     Dosage: 1200 MG, 1X/DAY
  10. MULTI-VITAMINS [Concomitant]
     Dosage: DAILY
  11. VITAMIN B-12 [Concomitant]
     Dosage: UNK
     Route: 030
  12. PLAVIX [Concomitant]
     Indication: MYOCARDIAL INFARCTION
     Dosage: 75 MG, 1X/DAY
     Dates: start: 20100910
  13. LISINOPRIL [Concomitant]
     Indication: MYOCARDIAL INFARCTION
     Dosage: 2.5 MG, 1X/DAY
  14. IBANDRONATE SODIUM [Concomitant]
     Indication: BONE DISORDER
     Dosage: 150 MG, MONTHLY
  15. DESYREL [Concomitant]
     Indication: SLEEP DISORDER
     Dosage: 50 UNK, UNK
  16. CITALOPRAM [Concomitant]
     Indication: ANTIDEPRESSANT THERAPY
  17. LAMOTRIGINE [Concomitant]
     Indication: ANTIDEPRESSANT THERAPY
  18. TYLENOL W/ CODEINE NO. 3 [Concomitant]

REACTIONS (20)
  - ACTIVITIES OF DAILY LIVING IMPAIRED [None]
  - ANGER [None]
  - ANTISOCIAL BEHAVIOUR [None]
  - ANXIETY [None]
  - BLOOD POTASSIUM DECREASED [None]
  - CONDITION AGGRAVATED [None]
  - DEHYDRATION [None]
  - DRUG INEFFECTIVE [None]
  - DYSPNOEA [None]
  - FEELING ABNORMAL [None]
  - HEART RATE INCREASED [None]
  - INTENTIONAL OVERDOSE [None]
  - LOSS OF CONSCIOUSNESS [None]
  - MAJOR DEPRESSION [None]
  - MEMORY IMPAIRMENT [None]
  - PANIC ATTACK [None]
  - SOMNOLENCE [None]
  - SUICIDAL IDEATION [None]
  - SUICIDE ATTEMPT [None]
  - THINKING ABNORMAL [None]
